FAERS Safety Report 15151759 (Version 1)
Quarter: 2018Q3

REPORT INFORMATION
  Report Type: Spontaneous
  Country: US (occurrence: US)
  Receive Date: 20180716
  Receipt Date: 20180716
  Transmission Date: 20181010
  Serious: No
  Sender: FDA-Public Use
  Company Number: US-ASTRAZENECA-2018SE85243

PATIENT
  Sex: Female

DRUGS (2)
  1. FASLODEX [Suspect]
     Active Substance: FULVESTRANT
     Route: 030
  2. IBRANCE [Suspect]
     Active Substance: PALBOCICLIB
     Indication: BREAST CANCER FEMALE
     Route: 048
     Dates: start: 20171226

REACTIONS (6)
  - Dysuria [Unknown]
  - Dizziness [Recovered/Resolved]
  - Leukopenia [Unknown]
  - Abdominal distension [Unknown]
  - Micturition urgency [Unknown]
  - Fatigue [Unknown]
